FAERS Safety Report 14296982 (Version 1)
Quarter: 2017Q4

REPORT INFORMATION
  Report Type: Spontaneous
  Country: US (occurrence: US)
  Receive Date: 20171218
  Receipt Date: 20171218
  Transmission Date: 20180321
  Serious: Yes (Other)
  Sender: FDA-Public Use
  Company Number: None

PATIENT
  Age: 59 Year
  Sex: Male
  Weight: 76.66 kg

DRUGS (2)
  1. GAMMAKED [Concomitant]
     Active Substance: HUMAN IMMUNOGLOBULIN G
  2. IVIG [Suspect]
     Active Substance: HUMAN IMMUNOGLOBULIN G
     Indication: MULTIFOCAL MOTOR NEUROPATHY
     Dosage: 2 GRAM/KG Q 2 WEEKS IV
     Route: 042

REACTIONS (6)
  - Multifocal motor neuropathy [None]
  - Lethargy [None]
  - Haemolysis [None]
  - Headache [None]
  - Haemoglobin decreased [None]
  - Blood bilirubin increased [None]

NARRATIVE: CASE EVENT DATE: 20171111
